FAERS Safety Report 24570245 (Version 2)
Quarter: 2024Q4

REPORT INFORMATION
  Report Type: Spontaneous
  Country: JP (occurrence: JP)
  Receive Date: 20241031
  Receipt Date: 20241219
  Transmission Date: 20250115
  Serious: Yes (Life-Threatening, Other)
  Sender: ALEXION PHARMACEUTICALS
  Company Number: JP-ASTRAZENECA-240114365_063010_P_1

PATIENT
  Age: 33 Year

DRUGS (20)
  1. DAPAGLIFLOZIN [Suspect]
     Active Substance: DAPAGLIFLOZIN
  2. DAPAGLIFLOZIN [Suspect]
     Active Substance: DAPAGLIFLOZIN
     Route: 048
  3. DAPAGLIFLOZIN [Suspect]
     Active Substance: DAPAGLIFLOZIN
  4. DAPAGLIFLOZIN [Suspect]
     Active Substance: DAPAGLIFLOZIN
     Route: 048
  5. TRAZODONE HYDROCHLORIDE [Concomitant]
     Active Substance: TRAZODONE HYDROCHLORIDE
     Dosage: 28 UNK
  6. TRAZODONE HYDROCHLORIDE [Concomitant]
     Active Substance: TRAZODONE HYDROCHLORIDE
     Dosage: 28 UNK
     Route: 048
  7. TRAZODONE HYDROCHLORIDE [Concomitant]
     Active Substance: TRAZODONE HYDROCHLORIDE
     Dosage: 28 UNK
  8. TRAZODONE HYDROCHLORIDE [Concomitant]
     Active Substance: TRAZODONE HYDROCHLORIDE
     Dosage: 28 UNK
     Route: 048
  9. RAMELTEON [Concomitant]
     Active Substance: RAMELTEON
  10. RAMELTEON [Concomitant]
     Active Substance: RAMELTEON
     Route: 048
  11. RAMELTEON [Concomitant]
     Active Substance: RAMELTEON
  12. RAMELTEON [Concomitant]
     Active Substance: RAMELTEON
     Route: 048
  13. ESZOPICLONE [Concomitant]
     Active Substance: ESZOPICLONE
  14. ESZOPICLONE [Concomitant]
     Active Substance: ESZOPICLONE
     Route: 048
  15. ESZOPICLONE [Concomitant]
     Active Substance: ESZOPICLONE
  16. ESZOPICLONE [Concomitant]
     Active Substance: ESZOPICLONE
     Route: 048
  17. ZALEPLON [Concomitant]
     Active Substance: ZALEPLON
  18. ZALEPLON [Concomitant]
     Active Substance: ZALEPLON
     Route: 048
  19. ZALEPLON [Concomitant]
     Active Substance: ZALEPLON
  20. ZALEPLON [Concomitant]
     Active Substance: ZALEPLON
     Route: 048

REACTIONS (5)
  - Altered state of consciousness [Recovering/Resolving]
  - Overdose [Unknown]
  - Blood ketone body increased [Unknown]
  - Glucose urine present [Recovered/Resolved]
  - Off label use [Unknown]
